FAERS Safety Report 5943760-0 (Version None)
Quarter: 2008Q4

REPORT INFORMATION
  Report Type: 
  Country: None (occurrence: None)
  Receive Date: 20081106
  Receipt Date: 20081104
  Transmission Date: 20090506
  Serious: Yes (Congenital Anomaly)
  Sender: FDA-Public Use
  Company Number: FR-WYE-G02513508

PATIENT

DRUGS (3)
  1. EFFEXOR [Suspect]
     Route: 064
     Dates: start: 20070701, end: 20070901
  2. EFFEXOR [Suspect]
     Dosage: 75 MG TOTAL DAILY
     Route: 064
     Dates: start: 20070901, end: 20071001
  3. EFFEXOR [Suspect]
     Route: 064
     Dates: start: 20071001

REACTIONS (3)
  - ANORECTAL AGENESIS [None]
  - DRUG EXPOSURE DURING PREGNANCY [None]
  - RENAL APLASIA [None]
